FAERS Safety Report 18790407 (Version 2)
Quarter: 2021Q1

REPORT INFORMATION
  Report Type: Spontaneous
  Country: SE (occurrence: SE)
  Receive Date: 20210126
  Receipt Date: 20210217
  Transmission Date: 20210419
  Serious: Yes (Other)
  Sender: FDA-Public Use
  Company Number: SE-TAKEDA-2021TUS004415

PATIENT
  Weight: 3.1 kg

DRUGS (1)
  1. PENTASA [Suspect]
     Active Substance: MESALAMINE
     Indication: FOETAL EXPOSURE TIMING UNSPECIFIED
     Dosage: 4 GRAM, QD
     Route: 064

REACTIONS (3)
  - Foetal anaemia [Unknown]
  - Foetal exposure during pregnancy [Recovered/Resolved]
  - Hydrops foetalis [Unknown]
